FAERS Safety Report 6016207-6 (Version None)
Quarter: 2008Q4

REPORT INFORMATION
  Report Type: 
  Country: None (occurrence: None)
  Receive Date: 20081222
  Receipt Date: 20081211
  Transmission Date: 20090506
  Serious: Yes (Other)
  Sender: FDA-Public Use
  Company Number: AT-GILEAD-2008-0015747

PATIENT
  Age: 19 Year
  Sex: Female

DRUGS (5)
  1. TRUVADA [Suspect]
     Indication: HIV INFECTION
     Route: 048
     Dates: start: 20080229, end: 20080314
  2. KALETRA [Concomitant]
     Indication: HIV INFECTION
     Route: 048
     Dates: start: 20080229
  3. COMBIVIR [Concomitant]
     Indication: HIV INFECTION
     Route: 048
     Dates: start: 20080314
  4. LORAZEPAM [Concomitant]
     Indication: SLEEP DISORDER
     Route: 048
  5. ACTIFERRIN [Concomitant]
     Indication: IRON DEFICIENCY
     Route: 048

REACTIONS (3)
  - ACCIDENTAL OVERDOSE [None]
  - HYPOPHOSPHATAEMIA [None]
  - PREGNANCY [None]
